FAERS Safety Report 13056555 (Version 1)
Quarter: 2016Q4

REPORT INFORMATION
  Report Type: Spontaneous
  Country: IT (occurrence: IT)
  Receive Date: 20161222
  Receipt Date: 20161222
  Transmission Date: 20170207
  Serious: Yes (Other)
  Sender: FDA-Public Use
  Company Number: IT-BAUSCH-BL-2016-031377

PATIENT
  Age: 10 Year
  Sex: Female

DRUGS (1)
  1. FLURBIPROFEN. [Suspect]
     Active Substance: FLURBIPROFEN
     Indication: OROPHARYNGEAL PAIN
     Route: 065

REACTIONS (1)
  - Anaphylactic reaction [Recovered/Resolved]
